FAERS Safety Report 5718583-8 (Version None)
Quarter: 2008Q2

REPORT INFORMATION
  Report Type: 
  Country: None (occurrence: None)
  Receive Date: 20080425
  Receipt Date: 20080417
  Transmission Date: 20081010
  Serious: Yes (Other)
  Sender: FDA-Public Use
  Company Number: US-ABBOTT-08P-163-0448776-00

PATIENT
  Sex: Male

DRUGS (5)
  1. HYDROCODONE BITARTRATE [Suspect]
     Indication: ROAD TRAFFIC ACCIDENT
     Dosage: NOT REPORTED
  2. HYDROMORPHONE HCL [Suspect]
     Indication: ROAD TRAFFIC ACCIDENT
     Dosage: NOT REPORTED
  3. MORPHINE [Suspect]
     Indication: ROAD TRAFFIC ACCIDENT
     Dosage: NOT REPORTED
  4. OXYCONTIN [Suspect]
     Indication: ROAD TRAFFIC ACCIDENT
     Dosage: NOT REPORTED
  5. FENTANYL CITRATE [Suspect]
     Indication: ROAD TRAFFIC ACCIDENT
     Dosage: NOT REPORTED

REACTIONS (1)
  - DRUG ABUSE [None]
